FAERS Safety Report 5021438-8 (Version None)
Quarter: 2006Q2

REPORT INFORMATION
  Report Type: 
  Country: None (occurrence: None)
  Receive Date: 20060425
  Receipt Date: 20060119
  Transmission Date: 20061013
  Serious: No
  Sender: FDA-Public Use
  Company Number: 221302

PATIENT
  Age: 58 Year
  Sex: Female
  Weight: 72.6 kg

DRUGS (4)
  1. XOLAIR [Suspect]
     Indication: ASTHMA
     Dosage: 300 MG, Q4W, SUBCUTANEOUS
     Route: 058
     Dates: start: 20051201
  2. ZOLOFT [Concomitant]
  3. ALLERGY MEDICATION NOS (ALLERGY MEDICATION NOS) [Concomitant]
  4. ASTHMA MEDICATIONS NOS (ANTIASTHMATIC DRUG NOS) [Concomitant]

REACTIONS (1)
  - DRY MOUTH [None]
